FAERS Safety Report 5874054-X (Version None)
Quarter: 2008Q3

REPORT INFORMATION
  Report Type: 
  Country: None (occurrence: None)
  Receive Date: 20080908
  Receipt Date: 20080901
  Transmission Date: 20090109
  Serious: Yes (Hospitalization)
  Sender: FDA-Public Use
  Company Number: FR-AVENTIS-200813198FR

PATIENT
  Age: 76 Year
  Sex: Female

DRUGS (7)
  1. ARAVA [Suspect]
     Route: 048
     Dates: end: 20080630
  2. REMICADE [Suspect]
     Route: 048
     Dates: start: 20080630, end: 20080701
  3. CORTANCYL [Concomitant]
     Route: 048
  4. KERLONE                            /00706301/ [Concomitant]
     Route: 048
  5. MOPRAL [Concomitant]
     Route: 048
  6. LEVOTHYROX [Concomitant]
     Indication: HYPOTHYROIDISM
     Route: 048
  7. ACETAMINOPHEN [Concomitant]
     Route: 048

REACTIONS (3)
  - DISSEMINATED TUBERCULOSIS [None]
  - EOSINOPHILIC PNEUMONIA [None]
  - HYPERTHERMIA [None]
